FAERS Safety Report 6474964-9 (Version None)
Quarter: 2009Q4

REPORT INFORMATION
  Report Type: 
  Country: None (occurrence: None)
  Receive Date: 20091204
  Receipt Date: 20090522
  Transmission Date: 20100525
  Serious: Yes (Life-Threatening, Hospitalization, Other)
  Sender: FDA-Public Use
  Company Number: US-ELI_LILLY_AND_COMPANY-US200903003822

PATIENT
  Sex: Female
  Weight: 43.084 kg

DRUGS (5)
  1. FORTEO [Suspect]
     Indication: OSTEOPOROSIS
     Dates: start: 20080101
  2. FUROSEMIDE [Concomitant]
  3. POTASSIUM [Concomitant]
  4. AMBIEN [Concomitant]
  5. ALLEGRA [Concomitant]

REACTIONS (6)
  - CLOSTRIDIAL INFECTION [None]
  - COLECTOMY TOTAL [None]
  - FALL [None]
  - INTESTINAL OBSTRUCTION [None]
  - MEGACOLON [None]
  - POST PROCEDURAL COMPLICATION [None]
